FAERS Safety Report 18364723 (Version 1)
Quarter: 2020Q4

REPORT INFORMATION
  Report Type: Spontaneous
  Country: US (occurrence: US)
  Receive Date: 20201009
  Receipt Date: 20201009
  Transmission Date: 20210114
  Serious: Yes (Other)
  Sender: FDA-Public Use
  Company Number: None

PATIENT
  Age: 64 Year
  Sex: Female
  Weight: 49.5 kg

DRUGS (1)
  1. CLEARLAX [Suspect]
     Active Substance: POLYETHYLENE GLYCOL 3350
     Indication: IRRITABLE BOWEL SYNDROME
     Route: 048
     Dates: start: 20201005, end: 20201007

REACTIONS (2)
  - Gastrointestinal disorder [None]
  - Product substitution issue [None]

NARRATIVE: CASE EVENT DATE: 20201004
